FAERS Safety Report 15568942 (Version 6)
Quarter: 2018Q4

REPORT INFORMATION
  Report Type: Report from Study
  Country: CA (occurrence: CA)
  Receive Date: 20181031
  Receipt Date: 20181121
  Transmission Date: 20190205
  Serious: No
  Sender: FDA-Public Use
  Company Number: CA-ROCHE-2207532

PATIENT
  Age: 42 Year
  Sex: Female

DRUGS (7)
  1. OCREVUS [Suspect]
     Active Substance: OCRELIZUMAB
     Indication: RELAPSING-REMITTING MULTIPLE SCLEROSIS
     Dosage: 300 MG AT DAY 0 AND 14, THEN 600 MG EVERY 6 MONTH
     Route: 042
     Dates: start: 20181016
  2. OMEGA 3 [Concomitant]
     Active Substance: OMEGA-3 FATTY ACIDS
     Dosage: YES
     Route: 065
  3. TERAZOSIN [Concomitant]
     Active Substance: TERAZOSIN\TERAZOSIN HYDROCHLORIDE
     Dosage: 2 MG IN THE MORNING AND 4 MG AT NIGHT
     Route: 065
  4. ADVAIR HFA [Concomitant]
     Active Substance: FLUTICASONE PROPIONATE\SALMETEROL XINAFOATE
  5. LYRICA [Concomitant]
     Active Substance: PREGABALIN
     Indication: PAIN
     Route: 065
  6. VENTOLIN [Concomitant]
     Active Substance: ALBUTEROL SULFATE
  7. ATIVAN [Concomitant]
     Active Substance: LORAZEPAM
     Route: 065

REACTIONS (19)
  - Sensory loss [Not Recovered/Not Resolved]
  - Oropharyngeal pain [Not Recovered/Not Resolved]
  - Nasal congestion [Not Recovered/Not Resolved]
  - Paraesthesia oral [Recovering/Resolving]
  - Throat irritation [Not Recovered/Not Resolved]
  - Rhinorrhoea [Not Recovered/Not Resolved]
  - Paraesthesia [Not Recovered/Not Resolved]
  - Headache [Not Recovered/Not Resolved]
  - Paraesthesia [Not Recovered/Not Resolved]
  - Rash [Not Recovered/Not Resolved]
  - Nasopharyngitis [Not Recovered/Not Resolved]
  - Poor venous access [Unknown]
  - Uhthoff^s phenomenon [Not Recovered/Not Resolved]
  - Pain in extremity [Not Recovered/Not Resolved]
  - Peripheral coldness [Not Recovered/Not Resolved]
  - Hypoaesthesia [Not Recovered/Not Resolved]
  - Nasal discharge discolouration [Not Recovered/Not Resolved]
  - Infection [Not Recovered/Not Resolved]
  - Temperature intolerance [Not Recovered/Not Resolved]

NARRATIVE: CASE EVENT DATE: 20181019
